FAERS Safety Report 12880348 (Version 1)
Quarter: 2016Q4

REPORT INFORMATION
  Report Type: Spontaneous
  Country: US (occurrence: US)
  Receive Date: 20161024
  Receipt Date: 20161024
  Transmission Date: 20170207
  Serious: Yes (Other)
  Sender: FDA-Public Use
  Company Number: None

PATIENT
  Age: 58 Year
  Sex: Female
  Weight: 69.75 kg

DRUGS (4)
  1. NEULASTA [Suspect]
     Active Substance: PEGFILGRASTIM
     Indication: CHEMOTHERAPY
     Dosage: ?          OTHER FREQUENCY:EVERY 3 WEEKS;?
     Route: 030
     Dates: start: 20160729, end: 20160930
  2. MULTI VITAMIN [Concomitant]
     Active Substance: VITAMINS
  3. VITAMIN C [Concomitant]
     Active Substance: ASCORBIC ACID
  4. MEDS FOR HIGH BLOOD PRESSURE [Concomitant]

REACTIONS (3)
  - Peripheral swelling [None]
  - Joint swelling [None]
  - Pain in extremity [None]

NARRATIVE: CASE EVENT DATE: 20160930
